FAERS Safety Report 8485510-2 (Version None)
Quarter: 2012Q3

REPORT INFORMATION
  Report Type: 
  Country: None (occurrence: None)
  Receive Date: 20120703
  Receipt Date: 20120625
  Transmission Date: 20120928
  Serious: Yes (Hospitalization, Other)
  Sender: FDA-Public Use
  Company Number: JP-PFIZER INC-2012101800

PATIENT
  Age: 22 Year
  Sex: Male
  Weight: 69 kg

DRUGS (26)
  1. CEFAZOLIN SODIUM [Concomitant]
     Indication: PROPHYLAXIS AGAINST DIARRHOEA
     Dosage: 1 G, 3X/DAY
     Route: 048
     Dates: start: 20081212
  2. SOLU-MEDROL [Suspect]
     Dosage: 30 MG, 2X/DAY
     Route: 042
     Dates: start: 20081219, end: 20090107
  3. PROGRAF [Suspect]
     Indication: IMMUNOSUPPRESSION
     Dosage: 0.3 MG, 2X/DAY
     Route: 048
     Dates: start: 20081215, end: 20081218
  4. FUNGUARD [Concomitant]
     Indication: INFECTION PROPHYLAXIS
     Dosage: 50 MG, 1X/DAY
     Route: 042
     Dates: start: 20081215, end: 20090122
  5. LOPERAMIDE HYDROCHLORIDE [Concomitant]
     Indication: PROPHYLAXIS AGAINST DIARRHOEA
     Dosage: 0.5 MG, 2X/DAY
     Route: 048
     Dates: start: 20081211
  6. PREDNISOLONE [Concomitant]
     Indication: IMMUNOSUPPRESSION
     Dosage: UNK
  7. PROGRAF [Suspect]
     Indication: GRAFT VERSUS HOST DISEASE
  8. LIMETHASONE [Concomitant]
     Indication: GRAFT VERSUS HOST DISEASE
     Dosage: 2.5 MG, 1X/DAY
     Route: 042
     Dates: start: 20090107, end: 20090130
  9. INTRALIPID 10% [Concomitant]
     Indication: HYPOPHAGIA
     Dosage: 200 ML, 1X/DAY
     Route: 042
     Dates: start: 20081211, end: 20081213
  10. CELLCEPT [Concomitant]
     Indication: GRAFT VERSUS HOST DISEASE
  11. PREDNISOLONE [Concomitant]
     Indication: GRAFT VERSUS HOST DISEASE
  12. FULCALIQ [Concomitant]
     Indication: HYPOPHAGIA
     Dosage: 1 DF, 2X/DAY
     Route: 042
     Dates: start: 20081214, end: 20081224
  13. ZANTAC [Concomitant]
     Indication: PROPHYLAXIS AGAINST GASTROINTESTINAL ULCER
     Dosage: 60 MG, 2X/DAY
     Route: 042
     Dates: start: 20081213, end: 20081222
  14. VITANEURIN [Concomitant]
     Indication: HYPOPHAGIA
     Dosage: 1 DF, 1X/DAY
     Route: 042
     Dates: start: 20081211, end: 20081211
  15. SOLU-MEDROL [Suspect]
     Dosage: 40 MG, 2X/DAY
     Route: 042
     Dates: start: 20081216, end: 20081216
  16. SOLU-MEDROL [Suspect]
     Dosage: 700 MG, 1X/DAY
     Route: 042
     Dates: start: 20081217, end: 20081218
  17. SANDOSTATIN [Concomitant]
     Indication: GRAFT VERSUS HOST DISEASE
     Dosage: 300 UG, 1X/DAY
     Route: 042
     Dates: start: 20081214, end: 20090127
  18. REMICADE [Concomitant]
     Indication: GRAFT VERSUS HOST DISEASE
     Dosage: 400 MG, 1X/DAY
     Route: 042
     Dates: start: 20081224, end: 20090110
  19. CERONEED [Concomitant]
     Indication: INFECTION PROPHYLAXIS
     Dosage: 1 G, 2X/DAY
     Route: 042
     Dates: start: 20081208, end: 20081213
  20. MAXIPIME [Concomitant]
     Indication: INFECTION PROPHYLAXIS
     Dosage: 1 G, 4X/DAY
     Route: 042
     Dates: start: 20081213, end: 20081218
  21. TIEPENEM [Concomitant]
     Indication: INFECTION PROPHYLAXIS
     Dosage: 0.5 G, 4X/DAY
     Route: 042
     Dates: start: 20081218, end: 20081228
  22. MEROPENEM [Concomitant]
     Indication: INFECTION PROPHYLAXIS
     Dosage: 0.5 G, 4X/DAY
     Route: 042
     Dates: start: 20081229, end: 20090105
  23. DEPAS [Concomitant]
     Indication: INSOMNIA
     Dosage: 1 MG, 1X/DAY
     Route: 048
     Dates: start: 20081222
  24. SOLU-MEDROL [Suspect]
     Indication: GRAFT VERSUS HOST DISEASE IN INTESTINE
     Dosage: 40 MG, 1X/DAY
     Route: 042
     Dates: start: 20081215, end: 20081215
  25. CELLCEPT [Concomitant]
     Indication: IMMUNOSUPPRESSION
     Dosage: 500 MG, 3X/DAY
     Route: 048
     Dates: start: 20081215, end: 20100117
  26. ZOVIRAX [Concomitant]
     Indication: PROPHYLAXIS
     Dosage: 200 MG, 2X/DAY
     Route: 048
     Dates: start: 20081216, end: 20090128

REACTIONS (2)
  - PANCREATITIS [None]
  - PSYCHIATRIC SYMPTOM [None]
